FAERS Safety Report 5480000-3 (Version None)
Quarter: 2007Q4

REPORT INFORMATION
  Report Type: 
  Country: None (occurrence: None)
  Receive Date: 20071008
  Receipt Date: 20070927
  Transmission Date: 20080405
  Serious: Yes (Other)
  Sender: FDA-Public Use
  Company Number: US-PFIZER INC-2007081637

PATIENT
  Sex: Male
  Weight: 81.818 kg

DRUGS (7)
  1. LIPITOR [Suspect]
  2. LYRICA [Suspect]
     Indication: FIBROMYALGIA
     Dates: start: 20070101, end: 20070101
  3. SYNTHROID [Concomitant]
  4. WARFARIN SODIUM [Concomitant]
  5. CYANOCOBALAMIN [Concomitant]
  6. ACETYLSALICYLIC ACID [Concomitant]
  7. ALTACE [Concomitant]

REACTIONS (11)
  - ARTHRALGIA [None]
  - BLOOD CHOLESTEROL INCREASED [None]
  - CHEST PAIN [None]
  - CONSTIPATION [None]
  - CORONARY ARTERY OCCLUSION [None]
  - FIBROMYALGIA [None]
  - INSOMNIA [None]
  - NEURALGIA [None]
  - PAIN IN EXTREMITY [None]
  - SCIATICA [None]
  - SOMNOLENCE [None]
